FAERS Safety Report 17662531 (Version 1)
Quarter: 2020Q2

REPORT INFORMATION
  Report Type: Spontaneous
  Country: NG (occurrence: NG)
  Receive Date: 20200413
  Receipt Date: 20200413
  Transmission Date: 20200713
  Serious: Yes (Hospitalization, Other)
  Sender: FDA-Public Use
  Company Number: NG-PFIZER INC-2020147422

PATIENT
  Age: 56 Year
  Sex: Female

DRUGS (5)
  1. LISINOPRIL. [Concomitant]
     Active Substance: LISINOPRIL
     Indication: HYPERTENSION
     Dosage: 10 MG, DAILY
  2. CO-AMILOZIDE [Concomitant]
     Active Substance: AMILORIDE HYDROCHLORIDE\HYDROCHLOROTHIAZIDE
     Indication: HYPERTENSION
     Dosage: 1 DF, DAILY
  3. CYCLOPHOSPHAMIDE. [Suspect]
     Active Substance: CYCLOPHOSPHAMIDE
     Indication: BREAST CANCER
     Dosage: 850 MG, CYCLIC (SIX COURSES, OVER A 4?MONTH PERIOD)
     Dates: start: 201204
  4. VASOPRIN [Concomitant]
     Indication: HYPERTENSION
     Dosage: 75 MG, DAILY
  5. EPIRUBICIN HCL [Suspect]
     Active Substance: EPIRUBICIN HYDROCHLORIDE
     Indication: BREAST CANCER
     Dosage: 85 MG, CYCLIC (SIX COURSES, OVER A 4?MONTH PERIOD)
     Dates: start: 201204

REACTIONS (4)
  - Tricuspid valve disease [Recovering/Resolving]
  - Right ventricular failure [Recovering/Resolving]
  - Right ventricular dysfunction [Recovering/Resolving]
  - Bundle branch block right [Recovering/Resolving]

NARRATIVE: CASE EVENT DATE: 2013
